FAERS Safety Report 5741292-6 (Version None)
Quarter: 2008Q2

REPORT INFORMATION
  Report Type: 
  Country: None (occurrence: None)
  Receive Date: 20080514
  Receipt Date: 20080509
  Transmission Date: 20081010
  Serious: Yes (Hospitalization, Other)
  Sender: FDA-Public Use
  Company Number: SPV1-2008-00906

PATIENT
  Age: 3 Year
  Sex: Male

DRUGS (1)
  1. ELAPRASE [Suspect]
     Indication: MUCOPOLYSACCHARIDOSIS II
     Dosage: 0.5 MG/KG, UNK, IV DRIP
     Route: 041
     Dates: start: 20071206

REACTIONS (7)
  - ANOREXIA [None]
  - CATHETER RELATED COMPLICATION [None]
  - DEHYDRATION [None]
  - ORAL INTAKE REDUCED [None]
  - OXYGEN SATURATION ABNORMAL [None]
  - PYREXIA [None]
  - WEIGHT DECREASED [None]
